FAERS Safety Report 12039085 (Version 9)
Quarter: 2018Q1

REPORT INFORMATION
  Report Type: Spontaneous
  Country: US (occurrence: US)
  Receive Date: 20160208
  Receipt Date: 20180323
  Transmission Date: 20180508
  Serious: Yes (Congenital Anomaly, Other)
  Sender: FDA-Public Use
  Company Number: PHEH2016US002902

PATIENT
  Sex: Female

DRUGS (3)
  1. ZOFRAN [Suspect]
     Active Substance: ONDANSETRON HYDROCHLORIDE
     Indication: FOETAL EXPOSURE DURING PREGNANCY
     Route: 064
  2. ZOFRAN ODT [Suspect]
     Active Substance: ONDANSETRON HYDROCHLORIDE
     Indication: FOETAL EXPOSURE DURING PREGNANCY
     Dosage: MOTHER^S DOSE: 1 DF, PRN
     Route: 064
  3. ONDANSETRON. [Suspect]
     Active Substance: ONDANSETRON
     Indication: FOETAL EXPOSURE DURING PREGNANCY
     Dosage: MOTHER^S DOSE: 8 MG, PRN
     Route: 064

REACTIONS (35)
  - Heart disease congenital [Unknown]
  - Right atrial enlargement [Unknown]
  - Emotional distress [Unknown]
  - Anxiety [Unknown]
  - Cardiomegaly [Unknown]
  - Pain [Unknown]
  - Cardiac murmur [Unknown]
  - Cardiac septal defect residual shunt [Unknown]
  - Bundle branch block right [Unknown]
  - Foetal exposure during pregnancy [Unknown]
  - Neck mass [Unknown]
  - Aortic dilatation [Unknown]
  - Congenital anomaly [Unknown]
  - Congenital aortic anomaly [Unknown]
  - Right aortic arch [Unknown]
  - Deafness [Unknown]
  - Pericardial effusion [Unknown]
  - Atrial septal defect [Unknown]
  - Congenital tricuspid valve incompetence [Unknown]
  - Right ventricular enlargement [Unknown]
  - Left ventricular dysfunction [Unknown]
  - Fallot^s tetralogy [Unknown]
  - Pharyngitis [Unknown]
  - Otitis media [Unknown]
  - Conjunctivitis [Unknown]
  - Ventricular septal defect [Unknown]
  - Cardiovascular disorder [Unknown]
  - Nasal congestion [Unknown]
  - Injury [Unknown]
  - Congenital pulmonary valve disorder [Unknown]
  - Pulmonary valve stenosis [Unknown]
  - Pulmonary valve incompetence [Unknown]
  - Cardiac failure [Unknown]
  - Pulmonary oedema [Unknown]
  - Rhinitis [Unknown]
